FAERS Safety Report 7701345-X (Version None)
Quarter: 2011Q3

REPORT INFORMATION
  Report Type: 
  Country: None (occurrence: None)
  Receive Date: 20110822
  Receipt Date: 20110811
  Transmission Date: 20111222
  Serious: Yes (Death, Hospitalization)
  Sender: FDA-Public Use
  Company Number: JP-AMGEN-JPNCT2011011672

PATIENT
  Age: 61 Year
  Sex: Female
  Weight: 55 kg

DRUGS (22)
  1. LEUCOVORIN CALCIUM [Suspect]
     Indication: COLORECTAL CANCER
     Route: 041
     Dates: start: 20101005, end: 20101130
  2. CORTICOSTEROIDS [Concomitant]
     Indication: PROPHYLAXIS
     Dosage: UNK
     Route: 065
  3. GRAN [Concomitant]
     Dosage: UNK
     Route: 042
  4. FENTANYL CITRATE [Concomitant]
     Route: 062
  5. OXALIPLATIN [Suspect]
     Indication: COLORECTAL CANCER
     Route: 041
     Dates: start: 20101005, end: 20101130
  6. FLUOROURACIL [Suspect]
     Indication: COLORECTAL CANCER
     Route: 040
     Dates: start: 20101005, end: 20101130
  7. MINOCYCLINE HCL [Concomitant]
     Dosage: UNK
     Route: 048
  8. MYSER [Concomitant]
     Route: 062
  9. HIRUDOID [Concomitant]
     Route: 062
  10. MORPHINE HCL ELIXIR [Concomitant]
     Dosage: UNK
     Route: 048
  11. PANITUMUMAB [Suspect]
     Indication: COLORECTAL CANCER METASTATIC
     Dosage: 6 MG/KG, Q2WK
     Route: 041
     Dates: start: 20101005, end: 20101005
  12. PANITUMUMAB [Suspect]
     Dosage: 6 MG/KG, Q2WK
     Route: 041
     Dates: start: 20101109, end: 20110222
  13. LOCOID [Concomitant]
     Route: 062
  14. EMEND [Concomitant]
     Route: 048
  15. DECADRON [Concomitant]
     Route: 048
  16. OXYCONTIN [Concomitant]
     Dosage: UNK
     Route: 048
  17. DUROTEP TAKEDA [Concomitant]
     Dosage: UNK
     Route: 062
  18. RABEPRAZOLE SODIUM [Concomitant]
     Dosage: UNK
     Route: 048
  19. FLUOROURACIL [Suspect]
     Route: 041
     Dates: start: 20101005, end: 20101130
  20. ANTIHISTAMINES [Concomitant]
     Indication: PROPHYLAXIS
     Dosage: UNK
     Route: 065
  21. LOCOID [Concomitant]
     Route: 062
  22. PANITUMUMAB [Suspect]
     Dosage: 6 MG/KG, Q2WK
     Route: 041
     Dates: start: 20110322, end: 20110322

REACTIONS (8)
  - WHITE BLOOD CELL COUNT DECREASED [None]
  - RASH [None]
  - PRURITUS [None]
  - CYSTITIS [None]
  - COLORECTAL CANCER [None]
  - VOMITING [None]
  - DECREASED APPETITE [None]
  - NAUSEA [None]
